FAERS Safety Report 12190266 (Version 1)
Quarter: 2016Q1

REPORT INFORMATION
  Report Type: Spontaneous
  Country: US (occurrence: None)
  Receive Date: 20160317
  Receipt Date: 20160317
  Transmission Date: 20160526
  Serious: Yes (Hospitalization)
  Sender: FDA-Public Use
  Company Number: None

PATIENT
  Age: 14 Year
  Sex: Female
  Weight: 0 kg

DRUGS (1)
  1. HUMIRA [Suspect]
     Active Substance: ADALIMUMAB
     Indication: CROHN^S DISEASE
     Dosage: SUBCUTANEOUS 057 40MG/0.8* INJECTABLE Q OTHER WEEK
     Route: 058
     Dates: start: 20151214, end: 20160222

REACTIONS (1)
  - Rash generalised [None]

NARRATIVE: CASE EVENT DATE: 20160229
